FAERS Safety Report 8345578-0 (Version None)
Quarter: 2012Q2

REPORT INFORMATION
  Report Type: 
  Country: None (occurrence: None)
  Receive Date: 20120508
  Receipt Date: 20120423
  Transmission Date: 20120825
  Serious: Yes (Hospitalization)
  Sender: FDA-Public Use
  Company Number: FR-WATSON-2012-06987

PATIENT
  Age: 60 Year
  Sex: Male

DRUGS (1)
  1. TRELSTAR [Suspect]
     Indication: PROSTATE CANCER
     Dosage: 22.5 MG MILLIGRAM(S) ONCE EVERY 6 MONTHS
     Route: 030
     Dates: start: 20110801, end: 20110801

REACTIONS (4)
  - HEPATIC FAILURE [None]
  - HEPATIC STEATOSIS [None]
  - CELL DEATH [None]
  - CHOLESTASIS [None]
